FAERS Safety Report 10665641 (Version 2)
Quarter: 2015Q1

REPORT INFORMATION
  Report Type: Spontaneous
  Country: US (occurrence: US)
  Receive Date: 20141219
  Receipt Date: 20150106
  Transmission Date: 20150720
  Serious: No
  Sender: FDA-Public Use
  Company Number: US-BAYER-2014-187305

PATIENT
  Age: 43 Year
  Sex: Female

DRUGS (1)
  1. MIRENA [Suspect]
     Active Substance: LEVONORGESTREL
     Indication: MENORRHAGIA
     Dosage: 20 MCG/24HR, CONT
     Route: 015
     Dates: start: 20121018

REACTIONS (7)
  - Back pain [None]
  - Blood iron decreased [None]
  - Pain in extremity [Not Recovered/Not Resolved]
  - Vaginal haemorrhage [None]
  - Pain in extremity [None]
  - Weight decreased [None]
  - Pain in extremity [None]

NARRATIVE: CASE EVENT DATE: 20121018
